FAERS Safety Report 4991508-9 (Version None)
Quarter: 2006Q2

REPORT INFORMATION
  Report Type: 
  Country: None (occurrence: None)
  Receive Date: 20060502
  Receipt Date: 20060419
  Transmission Date: 20061013
  Serious: Yes (Hospitalization)
  Sender: FDA-Public Use
  Company Number: 2006-00955

PATIENT
  Age: 54 Year
  Sex: Female
  Weight: 63 kg

DRUGS (2)
  1. VELCADE [Suspect]
     Indication: MULTIPLE MYELOMA
     Dosage: 2.20 MG, INTRAVENOUS
     Route: 042
  2. DOXIL/CAELYN (DORORUBICIN HYDROCHLORIDE) INJECTION [Suspect]
     Indication: MULTIPLE MYELOMA
     Dosage: 50.00 MG, INTRAVENOUS
     Route: 042

REACTIONS (6)
  - ABDOMINAL DISTENSION [None]
  - ADRENAL CORTICAL INSUFFICIENCY [None]
  - CONSTIPATION [None]
  - LABORATORY TEST ABNORMAL [None]
  - PYREXIA [None]
  - VERTIGO [None]
